FAERS Safety Report 4275096-0 (Version None)
Quarter: 2004Q1

REPORT INFORMATION
  Report Type: 
  Country: None (occurrence: None)
  Receive Date: 20040109
  Receipt Date: 20031225
  Transmission Date: 20041129
  Serious: Yes (Other)
  Sender: FDA-Public Use
  Company Number: 200310436BYL

PATIENT
  Age: 50 Year
  Sex: Female

DRUGS (2)
  1. GAMIMUNE N 5% [Suspect]
     Indication: INFECTION
     Dates: start: 20030719, end: 20030721
  2. PENTCILLIN [Concomitant]

REACTIONS (1)
  - MYCOPLASMA INFECTION [None]
